FAERS Safety Report 5689319-4 (Version None)
Quarter: 2008Q1

REPORT INFORMATION
  Report Type: 
  Country: None (occurrence: None)
  Receive Date: 20080331
  Receipt Date: 20080319
  Transmission Date: 20080703
  Serious: Yes (Other)
  Sender: FDA-Public Use
  Company Number: AU-PFIZER INC-2008025544

PATIENT
  Sex: Male

DRUGS (2)
  1. XALATAN [Suspect]
  2. XALACOM [Suspect]
     Indication: GLAUCOMA
     Dosage: FREQ:DAILY
     Route: 061

REACTIONS (2)
  - EYE PAIN [None]
  - INTRAOCULAR PRESSURE INCREASED [None]
